FAERS Safety Report 4370633-X (Version None)
Quarter: 2004Q2

REPORT INFORMATION
  Report Type: 
  Country: None (occurrence: None)
  Receive Date: 20040525
  Receipt Date: 20040330
  Transmission Date: 20050107
  Serious: Yes (Other)
  Sender: FDA-Public Use
  Company Number: 400425310/AKO-3858-AE

PATIENT
  Age: 50 Year
  Sex: Male

DRUGS (4)
  1. AK-FLUOR, 10%, AKORN [Suspect]
     Indication: DIAGNOSTIC PROCEDURE
     Dosage: 5 ML, INTRAVENOUS
     Route: 042
  2. ALTACE [Concomitant]
  3. PRED FORTE [Concomitant]
  4. QUIXIN [Concomitant]

REACTIONS (1)
  - HYPERSENSITIVITY [None]
